FAERS Safety Report 18754159 (Version 4)
Quarter: 2021Q2

REPORT INFORMATION
  Report Type: Report from Study
  Country: None (occurrence: US)
  Receive Date: 20210119
  Receipt Date: 20210520
  Transmission Date: 20210717
  Serious: Yes (Hospitalization, Other)
  Sender: FDA-Public Use
  Company Number: US-ABBVIE-20K-163-3497041-00

PATIENT
  Age: 56 Year
  Sex: Female
  Weight: 68.1 kg

DRUGS (18)
  1. HUMIRA [Suspect]
     Active Substance: ADALIMUMAB
     Route: 058
     Dates: start: 20200402, end: 202011
  2. CYMBALTA [Concomitant]
     Active Substance: DULOXETINE HYDROCHLORIDE
     Indication: FIBROMYALGIA
  3. PANTOPRAZOLE [Concomitant]
     Active Substance: PANTOPRAZOLE
     Indication: GASTROOESOPHAGEAL REFLUX DISEASE
  4. HUMIRA [Suspect]
     Active Substance: ADALIMUMAB
     Route: 058
     Dates: start: 20210128
  5. GABAPENTIN. [Concomitant]
     Active Substance: GABAPENTIN
     Indication: FIBROMYALGIA
  6. ARAVA [Suspect]
     Active Substance: LEFLUNOMIDE
     Indication: PRODUCT USED FOR UNKNOWN INDICATION
     Route: 065
  7. HUMIRA [Suspect]
     Active Substance: ADALIMUMAB
     Indication: RHEUMATOID ARTHRITIS
     Route: 058
     Dates: start: 202001, end: 2020
  8. METHOTREXATE. [Suspect]
     Active Substance: METHOTREXATE
     Indication: RHEUMATOID ARTHRITIS
     Dosage: EVERY FRIDAY (4 TABLETS)
     Route: 048
     Dates: end: 202004
  9. CYANOCOBALAMIN. [Concomitant]
     Active Substance: CYANOCOBALAMIN
     Indication: PRODUCT USED FOR UNKNOWN INDICATION
  10. LEFLUNOMIDE. [Suspect]
     Active Substance: LEFLUNOMIDE
     Indication: PRODUCT USED FOR UNKNOWN INDICATION
     Route: 048
  11. CYCLOBENZAPRINE. [Concomitant]
     Active Substance: CYCLOBENZAPRINE
     Indication: MUSCLE SPASMS
  12. VITAMIN D3 [Concomitant]
     Active Substance: CHOLECALCIFEROL
     Indication: VITAMIN D DECREASED
  13. METHOTREXATE. [Suspect]
     Active Substance: METHOTREXATE
     Dosage: FREQUENCY: EVERY FRIDAY
     Route: 048
     Dates: start: 202004
  14. CYMBALTA [Concomitant]
     Active Substance: DULOXETINE HYDROCHLORIDE
     Indication: DEPRESSION
  15. POTASSIUM [Concomitant]
     Active Substance: POTASSIUM
     Indication: BLOOD POTASSIUM DECREASED
  16. HYDROCHLOROTHIAZIDE. [Concomitant]
     Active Substance: HYDROCHLOROTHIAZIDE
     Indication: PRODUCT USED FOR UNKNOWN INDICATION
  17. QUETIAPINE FUMARATE. [Concomitant]
     Active Substance: QUETIAPINE FUMARATE
     Indication: INSOMNIA
  18. LOVASTATIN. [Concomitant]
     Active Substance: LOVASTATIN
     Indication: BLOOD CHOLESTEROL INCREASED

REACTIONS (32)
  - Anxiety [Recovered/Resolved]
  - Staphylococcal infection [Unknown]
  - Urinary tract infection [Unknown]
  - Rheumatoid arthritis [Recovered/Resolved]
  - General physical condition abnormal [Unknown]
  - Hepatic enzyme increased [Not Recovered/Not Resolved]
  - Intervertebral disc protrusion [Unknown]
  - Staphylococcal skin infection [Unknown]
  - Pain [Unknown]
  - Gait disturbance [Recovered/Resolved]
  - Fibromyalgia [Unknown]
  - Renal impairment [Unknown]
  - Hepatic function abnormal [Unknown]
  - Kidney infection [Recovered/Resolved]
  - Renal disorder [Unknown]
  - Intervertebral disc degeneration [Unknown]
  - Impaired self-care [Recovering/Resolving]
  - Musculoskeletal stiffness [Not Recovered/Not Resolved]
  - Swelling [Not Recovered/Not Resolved]
  - Peripheral swelling [Not Recovered/Not Resolved]
  - Pain in extremity [Not Recovered/Not Resolved]
  - Discomfort [Unknown]
  - Therapeutic response shortened [Recovered/Resolved]
  - Abdominal hernia [Not Recovered/Not Resolved]
  - Loss of personal independence in daily activities [Not Recovered/Not Resolved]
  - Rosacea [Not Recovered/Not Resolved]
  - Pain [Not Recovered/Not Resolved]
  - Hepatic enzyme increased [Recovered/Resolved]
  - Amnesia [Recovered/Resolved]
  - Oral mucosal eruption [Unknown]
  - Coccydynia [Unknown]
  - Back pain [Not Recovered/Not Resolved]

NARRATIVE: CASE EVENT DATE: 2020
